FAERS Safety Report 9474141 (Version 2)
Quarter: 2013Q3

REPORT INFORMATION
  Report Type: Spontaneous
  Country: US (occurrence: None)
  Receive Date: 20130820
  Receipt Date: 20130911
  Transmission Date: 20140515
  Serious: Yes (Death, Life-Threatening)
  Sender: FDA-Public Use
  Company Number: 2013SGN00477

PATIENT
  Age: 82 Year
  Sex: Male
  Weight: 78.8 kg

DRUGS (5)
  1. BRENTUXIMAB VEDOTIN [Suspect]
     Indication: ACUTE MYELOID LEUKAEMIA
     Route: 042
     Dates: start: 20130702, end: 20130723
  2. ESCITALOPRAM [Concomitant]
  3. OMEPRAZOLE [Concomitant]
  4. EMLA [Concomitant]
  5. ACYCLOVIR [Concomitant]

REACTIONS (8)
  - Sepsis [None]
  - Pyrexia [None]
  - Hypotension [None]
  - Escherichia bacteraemia [None]
  - Acute respiratory distress syndrome [None]
  - Escherichia sepsis [None]
  - Pneumonia [None]
  - Respiratory arrest [None]
